FAERS Safety Report 16755950 (Version 1)
Quarter: 2019Q3

REPORT INFORMATION
  Report Type: Spontaneous
  Country: RU (occurrence: RU)
  Receive Date: 20190829
  Receipt Date: 20190829
  Transmission Date: 20191005
  Serious: Yes (Hospitalization, Other)
  Sender: FDA-Public Use
  Company Number: RU-GILEAD-2019-0421137

PATIENT
  Age: 41 Year
  Sex: Male

DRUGS (3)
  1. DACLATASVIR. [Suspect]
     Active Substance: DACLATASVIR
     Indication: HEPATITIS C
     Dosage: UNK
     Route: 065
     Dates: start: 20190525, end: 20190602
  2. SOVALDI [Suspect]
     Active Substance: SOFOSBUVIR
     Indication: HEPATITIS C
     Dosage: UNK
     Route: 065
     Dates: start: 20190525, end: 20190602
  3. METFORMIN [Concomitant]
     Active Substance: METFORMIN HYDROCHLORIDE

REACTIONS (6)
  - Syncope [Unknown]
  - Hyperbilirubinaemia [Recovered/Resolved]
  - Decreased appetite [Unknown]
  - Off label use [Recovered/Resolved]
  - Abdominal discomfort [Unknown]
  - Jaundice [Unknown]

NARRATIVE: CASE EVENT DATE: 20190530
